FAERS Safety Report 17758557 (Version 1)
Quarter: 2020Q2

REPORT INFORMATION
  Report Type: Spontaneous
  Country: US (occurrence: US)
  Receive Date: 20200507
  Receipt Date: 20200507
  Transmission Date: 20200714
  Serious: Yes (Hospitalization, Other)
  Sender: FDA-Public Use
  Company Number: US-BRISTOL-MYERS SQUIBB COMPANY-BMS-2020-034150

PATIENT
  Sex: Female
  Weight: 90.7 kg

DRUGS (3)
  1. LEVOTHYROXINE. [Concomitant]
     Active Substance: LEVOTHYROXINE
     Indication: PRODUCT USED FOR UNKNOWN INDICATION
     Route: 065
  2. JAKAFI [Concomitant]
     Active Substance: RUXOLITINIB
     Indication: PRODUCT USED FOR UNKNOWN INDICATION
     Route: 065
  3. COUMADIN [Suspect]
     Active Substance: WARFARIN SODIUM
     Indication: ANTIPHOSPHOLIPID SYNDROME
     Dosage: UNK UNK, QD
     Route: 048
     Dates: start: 2008

REACTIONS (5)
  - Thyroid cancer [Unknown]
  - Bone cancer [Unknown]
  - Haematological malignancy [Unknown]
  - Breast disorder [Unknown]
  - Uterine disorder [Unknown]

NARRATIVE: CASE EVENT DATE: 2008
